FAERS Safety Report 26139041 (Version 1)
Quarter: 2025Q4

REPORT INFORMATION
  Report Type: Spontaneous
  Country: SA (occurrence: SA)
  Receive Date: 20251210
  Receipt Date: 20251210
  Transmission Date: 20260117
  Serious: Yes (Other)
  Sender: RANBAXY
  Company Number: SA-SUN PHARMACEUTICAL INDUSTRIES INC-2025RR-540150

PATIENT
  Age: 37 Year
  Sex: Male

DRUGS (1)
  1. FLUOXETINE [Suspect]
     Active Substance: FLUOXETINE HYDROCHLORIDE
     Indication: Generalised anxiety disorder
     Dosage: 2 MILLIGRAM, DAILY
     Route: 065

REACTIONS (2)
  - Impulsive behaviour [Recovering/Resolving]
  - Irritability [Recovering/Resolving]
